FAERS Safety Report 6516395-9 (Version None)
Quarter: 2009Q4

REPORT INFORMATION
  Report Type: 
  Country: None (occurrence: None)
  Receive Date: 20091223
  Receipt Date: 20091217
  Transmission Date: 20100525
  Serious: Yes (Life-Threatening, Hospitalization)
  Sender: FDA-Public Use
  Company Number: B0599538A

PATIENT
  Age: 39 Year
  Sex: Male

DRUGS (9)
  1. OMEPRAZOLE [Suspect]
  2. HYOSCINE [Suspect]
  3. METFORMIN HCL [Suspect]
     Dosage: 1500MG PER DAY
     Route: 048
  4. CLOMIPRAMINE HYDROCHLORIDE [Suspect]
     Indication: DEPRESSION
     Dosage: 200MG PER DAY
     Route: 048
  5. CLOZARIL [Suspect]
     Indication: SCHIZOPHRENIA
     Dosage: 600MG PER DAY
     Route: 048
     Dates: start: 20031202
  6. LISINOPRIL [Suspect]
     Indication: HYPERTENSION
     Dosage: 5MG PER DAY
     Route: 048
  7. SIMVASTATIN [Suspect]
     Indication: BLOOD CHOLESTEROL INCREASED
     Route: 048
  8. SENNA [Suspect]
     Indication: CONSTIPATION
     Route: 048
  9. THIAMINE HCL [Concomitant]
     Dosage: 300MG PER DAY
     Route: 048

REACTIONS (6)
  - AGITATION [None]
  - COMA SCALE ABNORMAL [None]
  - MECHANICAL VENTILATION [None]
  - NEUTROPHIL COUNT INCREASED [None]
  - OVERDOSE [None]
  - WHITE BLOOD CELL COUNT INCREASED [None]
